FAERS Safety Report 16326338 (Version 5)
Quarter: 2019Q3

REPORT INFORMATION
  Report Type: Spontaneous
  Country: CA (occurrence: CA)
  Receive Date: 20190517
  Receipt Date: 20190801
  Transmission Date: 20191004
  Serious: Yes (Hospitalization, Other)
  Sender: FDA-Public Use
  Company Number: CA-PFIZER INC-2019149165

PATIENT
  Age: 55 Year
  Sex: Female
  Weight: 95.8 kg

DRUGS (3)
  1. XELJANZ [Suspect]
     Active Substance: TOFACITINIB CITRATE
     Indication: RHEUMATOID ARTHRITIS
     Dosage: 5 MG, 2X/DAY
     Route: 048
     Dates: start: 20190410, end: 201906
  2. XELJANZ [Suspect]
     Active Substance: TOFACITINIB CITRATE
     Dosage: 5 MG, 2X/DAY
     Route: 048
     Dates: start: 201906, end: 20190723
  3. PREDNISONE. [Concomitant]
     Active Substance: PREDNISONE
     Dosage: UNK
     Route: 065
     Dates: end: 2019

REACTIONS (17)
  - Therapeutic product effect incomplete [Unknown]
  - Biliary colic [Unknown]
  - Intestinal obstruction [Unknown]
  - Lower respiratory tract infection [Unknown]
  - Muscle strain [Unknown]
  - Eye infection [Unknown]
  - Diarrhoea [Recovered/Resolved]
  - Oropharyngeal pain [Unknown]
  - Chest discomfort [Unknown]
  - Abdominal discomfort [Unknown]
  - Pyrexia [Recovered/Resolved]
  - Cholelithiasis [Not Recovered/Not Resolved]
  - Frustration tolerance decreased [Unknown]
  - Nausea [Unknown]
  - Chest pain [Unknown]
  - Abdominal pain [Recovered/Resolved]
  - Chills [Unknown]

NARRATIVE: CASE EVENT DATE: 2019
